FAERS Safety Report 9572045 (Version 1)
Quarter: 2013Q3

REPORT INFORMATION
  Report Type: Spontaneous
  Country: GB (occurrence: None)
  Receive Date: 20130927
  Receipt Date: 20130927
  Transmission Date: 20140515
  Serious: Yes (Life-Threatening, Hospitalization, Disabling, Other)
  Sender: FDA-Public Use
  Company Number: GER/UKI/13/0034644

PATIENT
  Age: 77 Year
  Sex: Male
  Weight: 92.7 kg

DRUGS (5)
  1. TERBINAFINE [Suspect]
     Indication: ONYCHOMYCOSIS
     Route: 048
     Dates: start: 20130806, end: 20130819
  2. ATORVASTATIN ( ATORVASTATIN) [Concomitant]
  3. CLOPIDOGREL ( CLOPIDOGREL) [Concomitant]
  4. FLUCLOXACILLIN ( FLUCLOXACILLIN) [Concomitant]
  5. PENICILLIN V ( PHENOXYMETHYLPENICILLIN) [Concomitant]

REACTIONS (6)
  - Renal failure acute [None]
  - Dermatitis exfoliative [None]
  - Arthralgia [None]
  - Rash generalised [None]
  - Renal impairment [None]
  - Erythema [None]
